FAERS Safety Report 6413631-4 (Version None)
Quarter: 2009Q4

REPORT INFORMATION
  Report Type: 
  Country: None (occurrence: None)
  Receive Date: 20091023
  Receipt Date: 20091023
  Transmission Date: 20100525
  Serious: Yes (Other)
  Sender: FDA-Public Use
  Company Number: None

PATIENT
  Age: 62 Year
  Sex: Female
  Weight: 100 kg

DRUGS (1)
  1. DAPTOMYCIN [Suspect]
     Indication: WOUND INFECTION
     Dosage: 600MG DAILY IV
     Route: 042
     Dates: start: 20091013, end: 20091018

REACTIONS (2)
  - BLOOD CREATINE PHOSPHOKINASE INCREASED [None]
  - MYALGIA [None]
